FAERS Safety Report 4525758-2 (Version None)
Quarter: 2004Q4

REPORT INFORMATION
  Report Type: 
  Country: None (occurrence: None)
  Receive Date: 20041116
  Receipt Date: 20041013
  Transmission Date: 20050328
  Serious: Yes (Other)
  Sender: FDA-Public Use
  Company Number: S04-USA-06733-03

PATIENT
  Age: 75 Year
  Sex: Male

DRUGS (6)
  1. NAMENDA [Suspect]
     Indication: DEMENTIA ALZHEIMER'S TYPE
     Dosage: 5 MG QD PO
     Route: 048
     Dates: start: 20040901, end: 20040901
  2. NAMENDA [Suspect]
     Indication: DEMENTIA ALZHEIMER'S TYPE
     Dosage: 5 MG BID PO
     Route: 048
     Dates: start: 20040101, end: 20040101
  3. DILANTIN [Concomitant]
  4. THYROID MEDICATION (NOS) [Concomitant]
  5. ANTIHYPERTENSIVE (NOS) [Concomitant]
  6. ANTIHYPERLIPIDEMIC [Concomitant]

REACTIONS (1)
  - CONVULSION [None]
